FAERS Safety Report 9882467 (Version 1)
Quarter: 2014Q1

REPORT INFORMATION
  Report Type: Report from Study
  Country: US (occurrence: US)
  Receive Date: 20140207
  Receipt Date: 20140207
  Transmission Date: 20141002
  Serious: Yes (Death)
  Sender: FDA-Public Use
  Company Number: PHEH2014US002628

PATIENT
  Sex: Male

DRUGS (1)
  1. NEORAL [Suspect]
     Indication: HEART TRANSPLANT
     Dosage: 25 MG, BID

REACTIONS (1)
  - Death [Fatal]
